FAERS Safety Report 6725835-1 (Version None)
Quarter: 2010Q2

REPORT INFORMATION
  Report Type: 
  Country: None (occurrence: None)
  Receive Date: 20100512
  Receipt Date: 20100426
  Transmission Date: 20101027
  Serious: Yes (Hospitalization, Other)
  Sender: FDA-Public Use
  Company Number: 230001J09IRL

PATIENT
  Age: 30 Year
  Sex: Male

DRUGS (2)
  1. REBIF [Suspect]
     Indication: MULTIPLE SCLEROSIS
     Dosage: 44
     Dates: start: 20081110, end: 20090802
  2. NAUDICELLE (NAUDICELLE) [Concomitant]

REACTIONS (8)
  - ALCOHOL USE [None]
  - APHASIA [None]
  - BRAIN SCAN ABNORMAL [None]
  - CSF PROTEIN INCREASED [None]
  - HEART RATE INCREASED [None]
  - PNEUMONIA ASPIRATION [None]
  - SOMNOLENCE [None]
  - STATUS EPILEPTICUS [None]
